FAERS Safety Report 16804354 (Version 1)
Quarter: 2019Q4

REPORT INFORMATION
  Report Type: Spontaneous
  Country: US (occurrence: US)
  Receive Date: 20190912
  Receipt Date: 20190912
  Transmission Date: 20200122
  Serious: Yes (Other)
  Sender: FDA-Public Use
  Company Number: None

PATIENT
  Age: 26 Year
  Sex: Female
  Weight: 63.45 kg

DRUGS (2)
  1. ENTYVIO [Suspect]
     Active Substance: VEDOLIZUMAB
     Indication: COLITIS ULCERATIVE
     Dosage: ?          OTHER FREQUENCY:EVERY 4 WEEKS;?
     Route: 042
     Dates: start: 20160104
  2. ENTYVIO [Concomitant]
     Active Substance: VEDOLIZUMAB

REACTIONS (2)
  - Peripheral swelling [None]
  - Pain [None]

NARRATIVE: CASE EVENT DATE: 20190812
